FAERS Safety Report 11637871 (Version 7)
Quarter: 2016Q2

REPORT INFORMATION
  Report Type: Report from Study
  Country: CZ (occurrence: CZ)
  Receive Date: 20151016
  Receipt Date: 20160427
  Transmission Date: 20160815
  Serious: Yes (Death, Life-Threatening, Other)
  Sender: FDA-Public Use
  Company Number: CZ-ASTELLAS-2015US037047

PATIENT
  Age: 85 Year
  Sex: Male

DRUGS (3)
  1. PRIESSNITZ FORTE [Concomitant]
     Indication: OSTEOPOROSIS PROPHYLAXIS
     Route: 048
     Dates: start: 201402
  2. ENZALUTAMIDE [Suspect]
     Active Substance: ENZALUTAMIDE
     Indication: PROSTATE CANCER
     Route: 048
     Dates: start: 20111201, end: 20151007
  3. ZOXON                              /00639301/ [Concomitant]
     Indication: BENIGN PROSTATIC HYPERPLASIA
     Route: 048
     Dates: start: 200912

REACTIONS (3)
  - Breast cancer [Recovered/Resolved]
  - Hypercalcaemia [Fatal]
  - Lymphadenopathy [Recovered/Resolved]

NARRATIVE: CASE EVENT DATE: 20151007
